FAERS Safety Report 18386504 (Version 1)
Quarter: 2020Q4

REPORT INFORMATION
  Report Type: Spontaneous
  Country: DE (occurrence: DE)
  Receive Date: 20201015
  Receipt Date: 20201015
  Transmission Date: 20210114
  Serious: Yes (Other)
  Sender: FDA-Public Use
  Company Number: DE-TEVA-2020-DE-1838058

PATIENT
  Sex: Female
  Weight: 90 kg

DRUGS (17)
  1. PREDNISOLONE. [Suspect]
     Active Substance: PREDNISOLONE
     Dosage: 10 UNK, 10MG,THERAPY  END DATE: ASKED BUT UNKNOWN
     Dates: start: 201602
  2. METHOTREXATE. [Suspect]
     Active Substance: METHOTREXATE
     Dosage: 20 MILLIGRAM, QW
  3. RITUXIMAB. [Suspect]
     Active Substance: RITUXIMAB
     Indication: PRODUCT USED FOR UNKNOWN INDICATION
     Dosage: 1 GRAM, 2X,THERAPY  END DATE: ASKED BUT UNKNOWN
     Dates: start: 201312
  4. TOCILIZUMAB. [Suspect]
     Active Substance: TOCILIZUMAB
     Indication: PRODUCT USED FOR UNKNOWN INDICATION
     Dosage: UNK,THERAPY  END DATE: ASKED BUT UNKNOWN
     Route: 042
     Dates: start: 201404
  5. ABATACEPT [Suspect]
     Active Substance: ABATACEPT
     Indication: PRODUCT USED FOR UNKNOWN INDICATION
     Dosage: UNK,THERAPY  END DATE: ASKED BUT UNKNOWN
     Route: 042
     Dates: start: 201410
  6. PREDNISOLONE. [Suspect]
     Active Substance: PREDNISOLONE
     Dosage: 50 MILLIGRAM,THERAPY START DATE AND END DATE: ASKED BUT UNKNOWN
  7. ABATACEPT [Suspect]
     Active Substance: ABATACEPT
     Dosage: UNK
     Dates: start: 201505
  8. ADALIMUMAB [Suspect]
     Active Substance: ADALIMUMAB
     Indication: SPONDYLITIS
     Dosage: 40 MILLIGRAM, BIWEEKLY,THERAPY  END DATE: ASKED BUT UNKNOWN
     Route: 058
     Dates: start: 201307
  9. ADALIMUMAB [Suspect]
     Active Substance: ADALIMUMAB
     Dosage: 40 MILLIGRAM, BIWEEKLY,THERAPY  END DATE: ASKED BUT UNKNOWN
     Route: 058
     Dates: start: 201301
  10. METHOTREXATE. [Suspect]
     Active Substance: METHOTREXATE
     Dosage: 7.5 MILLIGRAM, QW
     Dates: start: 201410
  11. ABATACEPT [Suspect]
     Active Substance: ABATACEPT
     Dosage: UNK,THERAPY  END DATE: ASKED BUT UNKNOWN
     Dates: start: 201506
  12. METHOTREXATE. [Suspect]
     Active Substance: METHOTREXATE
     Dosage: UNK
     Dates: start: 201505
  13. PREDNISOLONE. [Suspect]
     Active Substance: PREDNISOLONE
     Indication: PRODUCT USED FOR UNKNOWN INDICATION
     Dosage: 17.5 MILLIGRAM,THERAPY  END DATE: ASKED BUT UNKNOWN
     Dates: start: 201506
  14. PREDNISOLONE. [Suspect]
     Active Substance: PREDNISOLONE
     Dosage: 20 MILLIGRAM,THERAPY  END DATE: ASKED BUT UNKNOWN
     Dates: start: 201307
  15. CERTOLIZUMAB [Suspect]
     Active Substance: CERTOLIZUMAB
     Indication: PRODUCT USED FOR UNKNOWN INDICATION
     Dosage: 400 MILLIGRAM
     Route: 058
     Dates: start: 20160215, end: 201708
  16. METHOTREXATE. [Suspect]
     Active Substance: METHOTREXATE
     Indication: PRODUCT USED FOR UNKNOWN INDICATION
     Dosage: 7.5 MILLIGRAM, QW,THERAPY  END DATE: ASKED BUT UNKNOWN
     Route: 058
     Dates: start: 20160215
  17. METHOTREXATE. [Suspect]
     Active Substance: METHOTREXATE
     Dosage: UNK,THERAPY  END DATE: ASKED BUT UNKNOWN
     Dates: start: 201506

REACTIONS (2)
  - Drug ineffective [Unknown]
  - Hypertensive crisis [Unknown]
